FAERS Safety Report 18899985 (Version 1)
Quarter: 2021Q1

REPORT INFORMATION
  Report Type: Spontaneous
  Country: US (occurrence: US)
  Receive Date: 20210216
  Receipt Date: 20210216
  Transmission Date: 20210420
  Serious: No
  Sender: FDA-Public Use
  Company Number: US-GILEAD-2021-0517177

PATIENT
  Sex: Male

DRUGS (5)
  1. SOFOSBUVIR;VELPATASVIR [Suspect]
     Active Substance: SOFOSBUVIR\VELPATASVIR
     Indication: CHRONIC HEPATITIS C
     Dosage: 1 DOSAGE FORM, QD
     Route: 048
  2. LIDOCAINE. [Concomitant]
     Active Substance: LIDOCAINE
  3. KENALOG [Concomitant]
     Active Substance: TRIAMCINOLONE ACETONIDE
  4. MEDROL [Concomitant]
     Active Substance: METHYLPREDNISOLONE
  5. METFORMIN [Concomitant]
     Active Substance: METFORMIN HYDROCHLORIDE

REACTIONS (1)
  - Intentional dose omission [Recovered/Resolved]
